FAERS Safety Report 7423321-7 (Version None)
Quarter: 2011Q2

REPORT INFORMATION
  Report Type: 
  Country: None (occurrence: None)
  Receive Date: 20110419
  Receipt Date: 20110405
  Transmission Date: 20111010
  Serious: Yes (Hospitalization)
  Sender: FDA-Public Use
  Company Number: JP-ROCHE-746646

PATIENT
  Sex: Female
  Weight: 64 kg

DRUGS (26)
  1. ACTEMRA [Suspect]
     Indication: RHEUMATOID ARTHRITIS
     Route: 041
     Dates: start: 20091113, end: 20091113
  2. ACTEMRA [Suspect]
     Route: 041
     Dates: start: 20100305, end: 20100305
  3. PREDNISOLONE SODIUM SUCCINATE INJ [Concomitant]
     Route: 042
     Dates: start: 20091113, end: 20091113
  4. PREDNISOLONE SODIUM SUCCINATE INJ [Concomitant]
     Route: 042
     Dates: start: 20100402, end: 20100402
  5. BAKTAR [Concomitant]
     Route: 048
     Dates: start: 20101027
  6. ACTEMRA [Suspect]
     Route: 041
     Dates: start: 20100108, end: 20100108
  7. ACTEMRA [Suspect]
     Route: 041
     Dates: start: 20100402, end: 20100402
  8. PREDNISOLONE SODIUM SUCCINATE INJ [Concomitant]
     Route: 042
     Dates: start: 20100305, end: 20100305
  9. FOLIC ACID [Concomitant]
     Route: 048
     Dates: end: 20100827
  10. TEPRENONE [Concomitant]
     Route: 048
     Dates: end: 20100827
  11. SIMVASTATIN [Concomitant]
     Route: 048
     Dates: end: 20100827
  12. PREDONINE [Concomitant]
     Dosage: FORM: PER ORAL AGENT
     Route: 048
  13. ACTEMRA [Suspect]
     Route: 041
     Dates: start: 20100205, end: 20100205
  14. PREDNISOLONE SODIUM SUCCINATE INJ [Concomitant]
     Route: 042
     Dates: start: 20091211, end: 20091211
  15. LOXONIN [Concomitant]
     Dosage: FORM: PER ORAL AGENT
     Route: 048
  16. SELBEX [Concomitant]
     Dosage: FORM: PER ORAL AGENT
     Route: 048
  17. METOLATE [Concomitant]
     Dosage: FORM: PER ORAL AGENT
     Route: 048
  18. PREDNISOLONE SODIUM SUCCINATE INJ [Concomitant]
     Route: 042
     Dates: start: 20100108, end: 20100108
  19. ACTONEL [Concomitant]
     Dosage: FORM: PER ORAL AGENT
     Route: 048
  20. ACTEMRA [Suspect]
     Route: 041
     Dates: start: 20100430, end: 20100730
  21. SIMVASTATIN [Concomitant]
     Dosage: FORM: PER ORAL AGENT
     Route: 048
  22. KENTAN [Concomitant]
     Route: 048
     Dates: end: 20100827
  23. ACTEMRA [Suspect]
     Route: 041
     Dates: start: 20091211, end: 20091211
  24. NORVASC [Concomitant]
     Dosage: FORM: PER ORAL AGENT
     Route: 048
  25. BONALON [Concomitant]
     Route: 048
     Dates: start: 20070112, end: 20100827
  26. PREDNISOLONE SODIUM SUCCINATE INJ [Concomitant]
     Route: 042
     Dates: start: 20100205, end: 20100205

REACTIONS (2)
  - DIABETES MELLITUS [None]
  - HODGKIN'S DISEASE [None]
